FAERS Safety Report 7417196-X (Version None)
Quarter: 2011Q2

REPORT INFORMATION
  Report Type: 
  Country: None (occurrence: None)
  Receive Date: 20110415
  Receipt Date: 20110217
  Transmission Date: 20111010
  Serious: Yes (Hospitalization, Other)
  Sender: FDA-Public Use
  Company Number: US-BAYER-201029751NA

PATIENT
  Age: 47 Year
  Sex: Female

DRUGS (7)
  1. YAZ [Suspect]
     Indication: PREMENSTRUAL SYNDROME
  2. BIAXIN [Concomitant]
     Dosage: 500 MG, BID
     Dates: start: 20040103
  3. MULTIVITAMIN PREPARATION + MINERAL SUPPLEMENT [Concomitant]
     Dosage: UNK
     Dates: start: 20050101
  4. YAZ [Suspect]
     Indication: CONTRACEPTION
     Dosage: 1 DF, QD
     Dates: start: 20020101, end: 20040101
  5. ADVIL LIQUI-GELS [Concomitant]
     Dosage: UNK UNK, PRN
  6. ASCORBIC ACID [Concomitant]
     Dosage: UNK
     Dates: start: 20050101
  7. ALBUTEROL INHALER [Concomitant]
     Dosage: UNK
     Dates: start: 20050831

REACTIONS (7)
  - SPEECH DISORDER [None]
  - TRANSIENT ISCHAEMIC ATTACK [None]
  - HYPERHIDROSIS [None]
  - NAUSEA [None]
  - HYPOAESTHESIA [None]
  - DIZZINESS [None]
  - CEREBROVASCULAR ACCIDENT [None]
